FAERS Safety Report 8394905-7 (Version None)
Quarter: 2012Q2

REPORT INFORMATION
  Report Type: 
  Country: None (occurrence: None)
  Receive Date: 20120530
  Receipt Date: 20110429
  Transmission Date: 20120825
  Serious: No
  Sender: FDA-Public Use
  Company Number: US-GLAXOSMITHKLINE-A0926462A

PATIENT
  Age: 64 Year
  Sex: Female

DRUGS (6)
  1. REVATIO [Concomitant]
  2. LUNESTA [Concomitant]
  3. POTASSIUM CHLORIDE [Concomitant]
  4. FLOLAN [Suspect]
     Indication: PRODUCT USED FOR UNKNOWN INDICATION
     Dosage: 28NGKM SEE DOSAGE TEXT
     Route: 042
     Dates: start: 20080501
  5. COUMADIN [Concomitant]
  6. LEVOTHYROXINE SODIUM [Concomitant]

REACTIONS (1)
  - MUSCLE SPASMS [None]
